FAERS Safety Report 7156597-4 (Version None)
Quarter: 2010Q4

REPORT INFORMATION
  Report Type: 
  Country: None (occurrence: None)
  Receive Date: 20101214
  Receipt Date: 20091103
  Transmission Date: 20110411
  Serious: No
  Sender: FDA-Public Use
  Company Number: US-ASTRAZENECA-2009SE24268

PATIENT
  Age: 75 Year
  Sex: Female

DRUGS (9)
  1. CRESTOR [Suspect]
     Route: 048
     Dates: start: 20091020
  2. NEXIUM [Concomitant]
     Indication: GASTROOESOPHAGEAL REFLUX DISEASE
  3. ENALAPRIL [Concomitant]
     Indication: HYPERTENSION
  4. GLYBERIDE [Concomitant]
     Indication: DIABETES MELLITUS
  5. LIBRAX [Concomitant]
     Indication: IRRITABLE BOWEL SYNDROME
  6. ZYRTEC [Concomitant]
     Indication: MULTIPLE ALLERGIES
  7. BENICAR [Concomitant]
     Indication: HYPERTENSION
  8. GENUVIA [Concomitant]
     Indication: DIABETES MELLITUS
  9. ZANTAC [Concomitant]
     Indication: ABDOMINAL DISCOMFORT

REACTIONS (5)
  - ABDOMINAL PAIN [None]
  - BLOOD GLUCOSE INCREASED [None]
  - DRUG ADMINISTRATION ERROR [None]
  - POLLAKIURIA [None]
  - PROTEIN URINE [None]
